FAERS Safety Report 15924865 (Version 1)
Quarter: 2019Q1

REPORT INFORMATION
  Report Type: Spontaneous
  Country: IN (occurrence: IN)
  Receive Date: 20190206
  Receipt Date: 20190206
  Transmission Date: 20190417
  Serious: Yes (Death, Hospitalization, Other)
  Sender: FDA-Public Use
  Company Number: IN-SA-2019SA029957

PATIENT
  Sex: Female
  Weight: 3.4 kg

DRUGS (7)
  1. RIFAMPICIN [Suspect]
     Active Substance: RIFAMPIN
     Indication: CONGENITAL TUBERCULOSIS
  2. PREDNISOLONE. [Concomitant]
     Active Substance: PREDNISOLONE
     Route: 048
  3. PYRAZINAMIDE. [Suspect]
     Active Substance: PYRAZINAMIDE
     Indication: CONGENITAL TUBERCULOSIS
  4. ETHAMBUTOL [Suspect]
     Active Substance: ETHAMBUTOL HYDROCHLORIDE
     Indication: CONGENITAL TUBERCULOSIS
  5. CIPROFLOXACIN. [Concomitant]
     Active Substance: CIPROFLOXACIN
     Route: 042
  6. STREPTOMYCIN [Concomitant]
     Active Substance: STREPTOMYCIN\STREPTOMYCIN SULFATE
     Dosage: INJECTION
  7. ISONIAZID. [Suspect]
     Active Substance: ISONIAZID
     Indication: CONGENITAL TUBERCULOSIS

REACTIONS (8)
  - Liver function test abnormal [Unknown]
  - Thrombocytopenia [Unknown]
  - Seizure [Fatal]
  - Hepatotoxicity [Unknown]
  - Sudden cardiac death [Fatal]
  - Drug resistance [Fatal]
  - Respiratory distress [Fatal]
  - Oxygen saturation decreased [Fatal]
